FAERS Safety Report 10373883 (Version 1)
Quarter: 2014Q1

REPORT INFORMATION
  Report Type: Spontaneous
  Country: US (occurrence: None)
  Receive Date: 20140306
  Receipt Date: 20140306
  Transmission Date: 20141002
  Serious: Yes (Hospitalization)
  Sender: FDA-Public Use
  Company Number: 163-21880-13074156

PATIENT
  Age: 62 Year
  Sex: Female
  Weight: 91.17 kg

DRUGS (13)
  1. REVLIMID (LENALIDOMIDE) (10 MILLIGRAM, CAPSULES) [Suspect]
     Indication: PLASMA CELL MYELOMA RECURRENT
     Dosage: 10 MG, 21 IN 28 D, PO
     Route: 048
     Dates: start: 20130409, end: 20130711
  2. DEXAMETHASONE (DEXAMETHASONE) [Suspect]
     Indication: PLASMA CELL MYELOMA RECURRENT
     Dosage: 40 MG, 3 IN 28 D, PO
     Route: 048
     Dates: start: 20130409, end: 20130711
  3. MLN9708/PLACEBO [Suspect]
     Indication: PLASMA CELL MYELOMA RECURRENT
     Dosage: 4 MG, 3 IN 28 D, PO
     Route: 048
     Dates: start: 20130409, end: 20130812
  4. ABX (AMBROXOL HYDROCHLORIDE) [Concomitant]
  5. LASIX (FUROSEMIDE) [Concomitant]
  6. HUMALOG (INSULIN LISPRO) [Concomitant]
  7. LANTUS (INSULIN GLARGINE) (INJECTION) [Concomitant]
  8. FLLUIDS (I.V. SOLUTIONS) [Concomitant]
  9. PACKED RED BLOOD CELLS (RED BLOOD CELLS, CONCENTRATED) [Concomitant]
  10. ACYCLOVIR (ACICLOVIR) [Concomitant]
  11. CILOSTAZOL (CILOSTAZOL) [Concomitant]
  12. ASPIRIN (ACETYLSALICYLIC ACID) [Concomitant]
  13. MAGNESIUM OXIDE (MAGNESIUM OXIDE) [Concomitant]

REACTIONS (1)
  - Pilonidal cyst [None]
